FAERS Safety Report 5313046-6 (Version None)
Quarter: 2007Q2

REPORT INFORMATION
  Report Type: 
  Country: None (occurrence: None)
  Receive Date: 20070424
  Receipt Date: 20070410
  Transmission Date: 20071010
  Serious: Yes (Life-Threatening, Hospitalization)
  Sender: FDA-Public Use
  Company Number: 26549

PATIENT
  Age: 17 Year
  Sex: Female

DRUGS (3)
  1. NIACIN [Suspect]
     Dosage: 2500 MG PO
     Route: 048
  2. MEDROXYPROGESTERONE ACETATE [Concomitant]
  3. PAROXETINE HYDROCHLOROIDE [Concomitant]

REACTIONS (16)
  - CHILLS [None]
  - COAGULOPATHY [None]
  - DEHYDRATION [None]
  - DIZZINESS [None]
  - DRUG ABUSER [None]
  - DRUG TOXICITY [None]
  - FEELING COLD [None]
  - HYPERGLYCAEMIA [None]
  - HYPOGLYCAEMIA [None]
  - INTERNATIONAL NORMALISED RATIO INCREASED [None]
  - LOSS OF CONSCIOUSNESS [None]
  - METABOLIC ACIDOSIS [None]
  - NAUSEA [None]
  - PROTHROMBIN TIME PROLONGED [None]
  - SOMNOLENCE [None]
  - VOMITING [None]
